FAERS Safety Report 9356338 (Version 1)
Quarter: 2013Q2

REPORT INFORMATION
  Report Type: Spontaneous
  Country: US (occurrence: US)
  Receive Date: 20130619
  Receipt Date: 20130619
  Transmission Date: 20140414
  Serious: No
  Sender: FDA-Public Use
  Company Number: US-PFIZER INC-2013180415

PATIENT
  Age: 58 Year
  Sex: Male
  Weight: 99.77 kg

DRUGS (1)
  1. VIAGRA [Suspect]
     Indication: PENIS DISORDER
     Dosage: UNK, AS NEEDED
     Dates: start: 201303

REACTIONS (1)
  - Penis disorder [Unknown]
